FAERS Safety Report 7580764 (Version 5)
Quarter: 2013Q1

REPORT INFORMATION
  Report Type: Spontaneous
  Country: JP (occurrence: JP)
  Receive Date: 20100910
  Receipt Date: 20130213
  Transmission Date: 20140127
  Serious: Yes (Death, Hospitalization, Other)
  Sender: FDA-Public Use
  Company Number: JP-ROCHE-725383

PATIENT
  Age: 49 Year
  Sex: Female
  Weight: 42 kg

DRUGS (10)
  1. HERCEPTIN [Suspect]
     Indication: BREAST CANCER METASTATIC
     Route: 041
     Dates: start: 200807, end: 200807
  2. HERCEPTIN [Suspect]
     Route: 041
     Dates: start: 200808, end: 200902
  3. HERCEPTIN [Suspect]
     Route: 041
     Dates: start: 200903, end: 200908
  4. HERCEPTIN [Suspect]
     Route: 041
     Dates: start: 20100223, end: 20100616
  5. XELODA [Suspect]
     Indication: BREAST CANCER METASTATIC
     Dosage: DRUG NAME REPORTED AS XELODA 300, DOSAGE IS UNCERTAIN.
     Route: 048
     Dates: start: 20090827, end: 20100209
  6. PACLITAXEL [Suspect]
     Indication: BREAST CANCER METASTATIC
     Dosage: DOSAGE IS UNCERTAIN
     Route: 041
     Dates: start: 20100223, end: 20100616
  7. TYKERB [Suspect]
     Indication: BREAST CANCER METASTATIC
     Dosage: DOSAGE IS UNCERTAIN.
     Route: 048
  8. TYKERB [Suspect]
     Route: 048
  9. ZOMETA [Concomitant]
     Indication: BREAST CANCER METASTATIC
     Route: 041
     Dates: start: 200903
  10. NAVELBINE [Concomitant]
     Indication: BREAST CANCER METASTATIC
     Route: 042
     Dates: start: 200903, end: 200908

REACTIONS (4)
  - Disease progression [Fatal]
  - Malignant pleural effusion [Fatal]
  - Interstitial lung disease [Not Recovered/Not Resolved]
  - Rash [Unknown]
